FAERS Safety Report 13440392 (Version 1)
Quarter: 2017Q2

REPORT INFORMATION
  Report Type: Spontaneous
  Country: US (occurrence: US)
  Receive Date: 20170413
  Receipt Date: 20170413
  Transmission Date: 20170830
  Serious: No
  Sender: FDA-Public Use
  Company Number: US-ASTELLAS-2016US041642

PATIENT
  Sex: Female

DRUGS (2)
  1. PROGRAF [Suspect]
     Active Substance: TACROLIMUS\TACROLIMUS ANHYDROUS
     Indication: TRANSPLANT
     Dosage: 0.5 MG, TWICE DAILY
     Route: 048
     Dates: start: 20151016
  2. MYCOPHENOLIC ACID. [Concomitant]
     Active Substance: MYCOPHENOLIC ACID
     Indication: PRODUCT USED FOR UNKNOWN INDICATION
     Dosage: 1 DF (TABLET), TWICE DAILY
     Route: 048
     Dates: start: 20150625

REACTIONS (1)
  - Off label use [Unknown]
